FAERS Safety Report 20304749 (Version 1)
Quarter: 2022Q1

REPORT INFORMATION
  Report Type: Spontaneous
  Country: CA (occurrence: CA)
  Receive Date: 20220106
  Receipt Date: 20220106
  Transmission Date: 20220423
  Serious: No
  Sender: FDA-Public Use
  Company Number: CA-PFIZER INC-202101767407

PATIENT

DRUGS (1)
  1. FRAGMIN [Suspect]
     Active Substance: DALTEPARIN SODIUM
     Dosage: 12500 IU ,SSOL 5X0.5ML ,DSSD CA

REACTIONS (1)
  - Syringe issue [Unknown]
